FAERS Safety Report 4953929-X (Version None)
Quarter: 2006Q1

REPORT INFORMATION
  Report Type: 
  Country: None (occurrence: None)
  Receive Date: 20060327
  Receipt Date: 20060316
  Transmission Date: 20060701
  Serious: Yes (Hospitalization)
  Sender: FDA-Public Use
  Company Number: CN-JNJFOC-20060301456

PATIENT
  Sex: Male

DRUGS (1)
  1. TRAMAL 100 [Suspect]
     Indication: BILIARY COLIC
     Dosage: DURATION: ONCE
     Route: 030

REACTIONS (5)
  - ARTHRALGIA [None]
  - MYASTHENIC SYNDROME [None]
  - PAIN IN EXTREMITY [None]
  - TACHYCARDIA [None]
  - TREMOR [None]
